FAERS Safety Report 23602988 (Version 2)
Quarter: 2024Q2

REPORT INFORMATION
  Report Type: Report from Study
  Country: US (occurrence: US)
  Receive Date: 20240306
  Receipt Date: 20240514
  Transmission Date: 20240715
  Serious: Yes (Hospitalization, Other)
  Sender: FDA-Public Use
  Company Number: US-JNJFOC-20240280681

PATIENT
  Age: 74 Year
  Sex: Female

DRUGS (2)
  1. MACITENTAN [Suspect]
     Active Substance: MACITENTAN
     Indication: Pulmonary arterial hypertension
     Route: 048
     Dates: start: 202206
  2. MACITENTAN [Suspect]
     Active Substance: MACITENTAN
     Route: 048
     Dates: start: 202106

REACTIONS (10)
  - Renal failure [Not Recovered/Not Resolved]
  - Pulmonary oedema [Recovered/Resolved]
  - Neuropathy peripheral [Not Recovered/Not Resolved]
  - Anaemia [Not Recovered/Not Resolved]
  - Presyncope [Recovered/Resolved]
  - Plantar fasciitis [Not Recovered/Not Resolved]
  - Muscle spasms [Recovered/Resolved]
  - Dialysis hypotension [Recovered/Resolved]
  - Weight decreased [Recovered/Resolved]
  - Fluid retention [Recovered/Resolved]

NARRATIVE: CASE EVENT DATE: 20230101
